FAERS Safety Report 20127503 (Version 2)
Quarter: 2021Q4

REPORT INFORMATION
  Report Type: Spontaneous
  Country: IT (occurrence: IT)
  Receive Date: 20211129
  Receipt Date: 20211223
  Transmission Date: 20220304
  Serious: Yes (Hospitalization)
  Sender: FDA-Public Use
  Company Number: IT-STADA-225462

PATIENT
  Age: 62 Year
  Sex: Male
  Weight: 78.5 kg

DRUGS (3)
  1. POSACONAZOLE [Suspect]
     Active Substance: POSACONAZOLE
     Indication: Product used for unknown indication
     Dosage: UNK
     Dates: start: 20201229, end: 20210513
  2. PREDNISONE [Suspect]
     Active Substance: PREDNISONE
     Indication: Chronic graft versus host disease
     Dosage: UNK
     Route: 048
     Dates: start: 20210104, end: 20210315
  3. METHYLPREDNISOLONE [Suspect]
     Active Substance: METHYLPREDNISOLONE
     Indication: Chronic graft versus host disease
     Dosage: 4 MILLIGRAM, QD
     Route: 048
     Dates: start: 20210104

REACTIONS (3)
  - Hyperbilirubinaemia [Recovering/Resolving]
  - Jaundice [Recovering/Resolving]
  - Graft versus host disease in liver [Recovered/Resolved]

NARRATIVE: CASE EVENT DATE: 20210514
